FAERS Safety Report 6171620-1 (Version None)
Quarter: 2009Q2

REPORT INFORMATION
  Report Type: 
  Country: None (occurrence: None)
  Receive Date: 20090429
  Receipt Date: 20090421
  Transmission Date: 20091009
  Serious: Yes (Other)
  Sender: FDA-Public Use
  Company Number: US-AVENTIS-200911956US

PATIENT
  Sex: Female
  Weight: 64.4 kg

DRUGS (7)
  1. LOVENOX [Suspect]
     Dates: start: 20090116
  2. LOVENOX [Suspect]
     Indication: CHEMOTHERAPY
     Dates: start: 20090116
  3. AMLODIPINE BESYLATE [Concomitant]
  4. ALPRAZOLAM [Concomitant]
  5. SIMVASTATIN [Concomitant]
  6. EFFEXOR XR [Concomitant]
  7. ALL OTHER THERAPEUTIC PRODUCTS [Concomitant]
     Indication: LYMPHOMA
     Dosage: DOSE: UNK

REACTIONS (2)
  - CATHETER THROMBOSIS [None]
  - DRUG INEFFECTIVE [None]
